FAERS Safety Report 20701215 (Version 1)
Quarter: 2022Q2

REPORT INFORMATION
  Report Type: Spontaneous
  Country: US (occurrence: US)
  Receive Date: 20220412
  Receipt Date: 20220412
  Transmission Date: 20220720
  Serious: No
  Sender: FDA-Public Use
  Company Number: US-PFIZER INC-2021750056

PATIENT

DRUGS (2)
  1. MARCAINE [Suspect]
     Active Substance: BUPIVACAINE HYDROCHLORIDE
     Indication: Spinal anaesthesia
     Dosage: 7.5 MG
  2. BUPIVACAINE\DEXTROSE [Suspect]
     Active Substance: BUPIVACAINE\DEXTROSE
     Dosage: UNK

REACTIONS (1)
  - Drug ineffective [Unknown]
